FAERS Safety Report 4643704-8 (Version None)
Quarter: 2005Q2

REPORT INFORMATION
  Report Type: 
  Country: None (occurrence: None)
  Receive Date: 20050425
  Receipt Date: 20050414
  Transmission Date: 20051028
  Serious: Yes (Other)
  Sender: FDA-Public Use
  Company Number: PHEH2005US04371

PATIENT
  Age: 58 Year
  Sex: Female
  Weight: 53 kg

DRUGS (13)
  1. AREDIA [Suspect]
     Indication: METASTASES TO BONE
     Dosage: UNK, UNK
     Dates: start: 20020531, end: 20031024
  2. AREDIA [Suspect]
     Dosage: UNK, UNK
     Dates: start: 20040624, end: 20050101
  3. ZOMETA [Suspect]
     Indication: METASTASES TO BONE
     Dosage: 4MG Q4WK
     Route: 042
     Dates: start: 20020418, end: 20020508
  4. PROCRIT [Concomitant]
     Dosage: 40000 IU, QW
     Route: 058
  5. ABRAXANE [Concomitant]
     Indication: CHEMOTHERAPY
     Dates: start: 20050324
  6. MEGACE [Concomitant]
     Indication: DECREASED APPETITE
  7. METOPROLOL TARTRATE [Concomitant]
     Indication: HYPERTENSION
  8. CELEXA [Concomitant]
     Indication: DEPRESSION
  9. PRILOSEC [Concomitant]
     Indication: GASTROOESOPHAGEAL REFLUX DISEASE
  10. FUROSEMIDE [Concomitant]
  11. K-DUR 10 [Concomitant]
  12. ATIVAN [Concomitant]
     Indication: INSOMNIA
     Dosage: 1MG PRN SLEEP
  13. DEXAMETHASONE [Concomitant]
     Indication: PREMEDICATION
     Dates: start: 20050324

REACTIONS (4)
  - ANAEMIA [None]
  - FISTULA [None]
  - FISTULA REPAIR [None]
  - TOOTH EXTRACTION [None]
